FAERS Safety Report 4905512-X (Version None)
Quarter: 2006Q1

REPORT INFORMATION
  Report Type: 
  Country: None (occurrence: None)
  Receive Date: 20060208
  Receipt Date: 20060119
  Transmission Date: 20060701
  Serious: Yes (Hospitalization, Other)
  Sender: FDA-Public Use
  Company Number: PHEH2006US01109

PATIENT
  Age: 48 Year
  Sex: Male
  Weight: 51.247 kg

DRUGS (8)
  1. GLEEVEC [Suspect]
     Indication: GASTROINTESTINAL STROMAL TUMOUR
     Dosage: 400 MG, QD
     Route: 048
     Dates: start: 20050712
  2. ZYPREXA [Concomitant]
     Dosage: 20 MG, QHS
     Route: 048
  3. ALPRAZOLAM [Concomitant]
     Dosage: 1 MG, BID PRN
     Route: 048
  4. COMPAZINE [Concomitant]
     Dosage: 5-10 MG Q6H PRN
     Route: 048
  5. COLACE [Concomitant]
     Dosage: 100 MG, BID
     Route: 048
  6. VICODIN [Concomitant]
     Dosage: 1-2 DF, Q6H PRN
     Route: 048
  7. VICODIN [Concomitant]
     Dosage: 1-2 DF, Q6H PRN
     Route: 048
  8. VICODIN [Concomitant]
     Dosage: 1-2 DF, Q6H PRN
     Route: 048

REACTIONS (5)
  - HYPOAESTHESIA [None]
  - MULTIPLE SCLEROSIS [None]
  - PARAESTHESIA [None]
  - REFUSAL OF TREATMENT BY PATIENT [None]
  - URINARY INCONTINENCE [None]
